FAERS Safety Report 5890176-1 (Version None)
Quarter: 2008Q3

REPORT INFORMATION
  Report Type: 
  Country: None (occurrence: None)
  Receive Date: 20080919
  Receipt Date: 20080910
  Transmission Date: 20090109
  Serious: Yes (Other)
  Sender: FDA-Public Use
  Company Number: US-JNJCH-2008023618

PATIENT
  Sex: Female

DRUGS (1)
  1. VISINE-A [Suspect]
     Indication: INTENTIONAL DRUG MISUSE
     Dosage: TEXT:UNSPECIFIED
     Route: 048

REACTIONS (4)
  - ABASIA [None]
  - DIZZINESS [None]
  - INCORRECT ROUTE OF DRUG ADMINISTRATION [None]
  - POISONING [None]
